FAERS Safety Report 23318705 (Version 1)
Quarter: 2023Q4

REPORT INFORMATION
  Report Type: Spontaneous
  Country: US (occurrence: US)
  Receive Date: 20231220
  Receipt Date: 20231220
  Transmission Date: 20240110
  Serious: No
  Sender: FDA-Public Use
  Company Number: US-SA-SAC20231214000139

PATIENT
  Sex: Female
  Weight: 63.6 kg

DRUGS (20)
  1. DUPIXENT [Suspect]
     Active Substance: DUPILUMAB
     Indication: Illness
     Dosage: 300 MG, QOW
     Route: 058
  2. ADEMPAS [Concomitant]
     Active Substance: RIOCIGUAT
  3. SILDENAFIL CITRATE [Concomitant]
     Active Substance: SILDENAFIL CITRATE
  4. VITAMINS [Concomitant]
     Active Substance: VITAMINS
  5. HYDROXYZINE HYDROCHLORIDE [Concomitant]
     Active Substance: HYDROXYZINE HYDROCHLORIDE
  6. SERTRALINE HYDROCHLORIDE [Concomitant]
     Active Substance: SERTRALINE HYDROCHLORIDE
  7. MESALAMINE [Concomitant]
     Active Substance: MESALAMINE
  8. OPSUMIT [Concomitant]
     Active Substance: MACITENTAN
  9. VELETRI [Concomitant]
     Active Substance: EPOPROSTENOL
  10. SODIUM CHLORIDE [Concomitant]
     Active Substance: SODIUM CHLORIDE
  11. MECLIZINE [Concomitant]
     Active Substance: MECLIZINE HYDROCHLORIDE
  12. ACETAMINOPHEN [Concomitant]
     Active Substance: ACETAMINOPHEN
  13. TOPIRAMATE [Concomitant]
     Active Substance: TOPIRAMATE
  14. FUROSEMIDE [Concomitant]
     Active Substance: FUROSEMIDE
  15. OCREVUS [Concomitant]
     Active Substance: OCRELIZUMAB
  16. OMEPRAZOLE [Concomitant]
     Active Substance: OMEPRAZOLE
  17. NURTEC ODT [Concomitant]
     Active Substance: RIMEGEPANT SULFATE
  18. VISINE [TETRYZOLINE HYDROCHLORIDE] [Concomitant]
  19. OXYGEN [Concomitant]
     Active Substance: OXYGEN
  20. SODIUM CHLORIDE [Concomitant]
     Active Substance: SODIUM CHLORIDE

REACTIONS (2)
  - Bronchitis [Unknown]
  - Illness [Unknown]

NARRATIVE: CASE EVENT DATE: 20230101
